FAERS Safety Report 7145974-3 (Version None)
Quarter: 2010Q4

REPORT INFORMATION
  Report Type: 
  Country: None (occurrence: None)
  Receive Date: 20101208
  Receipt Date: 20101129
  Transmission Date: 20110411
  Serious: Yes (Death)
  Sender: FDA-Public Use
  Company Number: US-PERRIGO-10US015185

PATIENT
  Age: 17 Year
  Sex: Male

DRUGS (1)
  1. ACETAMINOPHEN SLOW RELEASE [Suspect]
     Indication: COMPLETED SUICIDE
     Dosage: 20,000 MG, SINGLE
     Route: 048

REACTIONS (1)
  - INTENTIONAL OVERDOSE [None]
